FAERS Safety Report 11108241 (Version 2)
Quarter: 2015Q2

REPORT INFORMATION
  Report Type: Spontaneous
  Country: US (occurrence: US)
  Receive Date: 20150512
  Receipt Date: 20150520
  Transmission Date: 20150821
  Serious: Yes (Other)
  Sender: FDA-Public Use
  Company Number: US-RB-076799-15

PATIENT
  Age: 29 Year
  Sex: Female

DRUGS (1)
  1. DELSYM [Suspect]
     Active Substance: DEXTROMETHORPHAN
     Indication: COUGH
     Route: 065
     Dates: end: 20150427

REACTIONS (8)
  - Abdominal pain upper [Unknown]
  - Anxiety [Unknown]
  - Nausea [Unknown]
  - Restlessness [Unknown]
  - Euphoric mood [Unknown]
  - Feeling abnormal [Unknown]
  - Underdose [Unknown]
  - Faecal incontinence [Unknown]

NARRATIVE: CASE EVENT DATE: 20150427
